FAERS Safety Report 7145363-1 (Version None)
Quarter: 2010Q4

REPORT INFORMATION
  Report Type: 
  Country: None (occurrence: None)
  Receive Date: 20101208
  Receipt Date: 20101122
  Transmission Date: 20110411
  Serious: Yes (Life-Threatening, Other)
  Sender: FDA-Public Use
  Company Number: US-PFIZER INC-US-WYE-H17415610

PATIENT
  Sex: Male

DRUGS (4)
  1. ADVIL [Suspect]
     Indication: HANGOVER
     Dosage: 200 MG, UNK
     Route: 048
  2. ADVIL [Interacting]
     Indication: MALAISE
     Dosage: 4 TABLETS X1
     Route: 048
     Dates: start: 20100820, end: 20100820
  3. ADVIL [Interacting]
     Dosage: UNK
     Route: 048
     Dates: start: 20100906, end: 20100906
  4. MULTI-VITAMINS [Interacting]
     Route: 048

REACTIONS (3)
  - ANAPHYLACTIC REACTION [None]
  - DRUG INTERACTION [None]
  - INCORRECT DOSE ADMINISTERED [None]
